FAERS Safety Report 7655906-7 (Version None)
Quarter: 2011Q3

REPORT INFORMATION
  Report Type: 
  Country: None (occurrence: None)
  Receive Date: 20110804
  Receipt Date: 20110804
  Transmission Date: 20111222
  Serious: Yes (Disabling)
  Sender: FDA-Public Use
  Company Number: None

PATIENT
  Age: 87 Year
  Sex: Male
  Weight: 89.811 kg

DRUGS (1)
  1. TRAVATAN Z [Suspect]
     Indication: INTRAOCULAR PRESSURE INCREASED
     Dosage: ONE DROP IN RIGHT EYE
     Route: 031
     Dates: start: 20110629, end: 20110801

REACTIONS (2)
  - BLINDNESS UNILATERAL [None]
  - MACULAR OEDEMA [None]
